FAERS Safety Report 17258508 (Version 1)
Quarter: 2020Q1

REPORT INFORMATION
  Report Type: Spontaneous
  Country: US (occurrence: US)
  Receive Date: 20200110
  Receipt Date: 20200110
  Transmission Date: 20200409
  Serious: No
  Sender: FDA-Public Use
  Company Number: US-ASTRAZENECA-2020SE00735

PATIENT
  Sex: Female
  Weight: 44.5 kg

DRUGS (2)
  1. SYMBICORT [Suspect]
     Active Substance: BUDESONIDE\FORMOTEROL FUMARATE DIHYDRATE
     Route: 055
  2. METOPROLOL. [Interacting]
     Active Substance: METOPROLOL
     Route: 065

REACTIONS (2)
  - Drug interaction [Unknown]
  - Increased tendency to bruise [Unknown]
